FAERS Safety Report 4816490-6 (Version None)
Quarter: 2005Q4

REPORT INFORMATION
  Report Type: 
  Country: None (occurrence: None)
  Receive Date: 20051028
  Receipt Date: 20051020
  Transmission Date: 20060501
  Serious: Yes (Other)
  Sender: FDA-Public Use
  Company Number: 218518

PATIENT
  Age: 17 Year
  Weight: 72.1 kg

DRUGS (2)
  1. XOLAIR [Suspect]
     Indication: ASTHMA
  2. ADVAIR DISKUS 100/50 [Concomitant]

REACTIONS (1)
  - CROHN'S DISEASE [None]
